FAERS Safety Report 4936436-X (Version None)
Quarter: 2006Q1

REPORT INFORMATION
  Report Type: 
  Country: None (occurrence: None)
  Receive Date: 20060302
  Receipt Date: 20060213
  Transmission Date: 20060701
  Serious: Yes (Other)
  Sender: FDA-Public Use
  Company Number: US200602002994

PATIENT
  Sex: Male

DRUGS (1)
  1. SYMBYAX [Suspect]
     Dosage: D/F, DAILY (1/D)
     Dates: start: 20050101, end: 20060210

REACTIONS (1)
  - LEUKOCYTOCLASTIC VASCULITIS [None]
